FAERS Safety Report 21580411 (Version 1)
Quarter: 2022Q4

REPORT INFORMATION
  Report Type: Spontaneous
  Country: AT (occurrence: AT)
  Receive Date: 20221110
  Receipt Date: 20221110
  Transmission Date: 20230112
  Serious: Yes (Other)
  Sender: FDA-Public Use
  Company Number: AT-STRIDES ARCOLAB LIMITED-2022SP014908

PATIENT
  Age: 4 Year
  Sex: Male

DRUGS (6)
  1. ETOPOSIDE [Suspect]
     Active Substance: ETOPOSIDE
     Indication: Metastases to meninges
     Dosage: 1500 MILLIGRAM/SQ. METER
     Route: 065
  2. ETOPOSIDE [Suspect]
     Active Substance: ETOPOSIDE
     Indication: Glioneuronal tumour
  3. CISPLATIN [Suspect]
     Active Substance: CISPLATIN
     Indication: Metastases to meninges
     Dosage: 440 MILLIGRAM/SQ. METER
     Route: 065
  4. CISPLATIN [Suspect]
     Active Substance: CISPLATIN
     Indication: Glioneuronal tumour
  5. IFOSFAMIDE [Suspect]
     Active Substance: IFOSFAMIDE
     Indication: Metastases to meninges
     Dosage: 33000 MILLIGRAM/SQ. METER
     Route: 065
  6. IFOSFAMIDE [Suspect]
     Active Substance: IFOSFAMIDE
     Indication: Glioneuronal tumour

REACTIONS (2)
  - Renal impairment [Unknown]
  - Off label use [Unknown]
